FAERS Safety Report 9264793 (Version 1)
Quarter: 2013Q2

REPORT INFORMATION
  Report Type: Spontaneous
  Country: US (occurrence: None)
  Receive Date: 20130429
  Receipt Date: 20130429
  Transmission Date: 20140414
  Serious: Yes (Life-Threatening, Hospitalization)
  Sender: FDA-Public Use
  Company Number: None

PATIENT
  Age: 79 Year
  Sex: Male
  Weight: 77.7 kg

DRUGS (1)
  1. XARELTO 20 MG [Suspect]
     Indication: ATRIAL FIBRILLATION
     Dosage: 20 MG DAILY PO
     Route: 048
     Dates: start: 20130301, end: 20130416

REACTIONS (6)
  - Skin necrosis [None]
  - Haemoglobin decreased [None]
  - Oedema peripheral [None]
  - Ecchymosis [None]
  - Haemorrhage [None]
  - Blood pressure decreased [None]
